FAERS Safety Report 8303399-9 (Version None)
Quarter: 2012Q2

REPORT INFORMATION
  Report Type: 
  Country: None (occurrence: None)
  Receive Date: 20120423
  Receipt Date: 20120417
  Transmission Date: 20120825
  Serious: No
  Sender: FDA-Public Use
  Company Number: US-B.I. PHARMACEUTICALS,INC./RIDGEFIELD-2012-BP-07266BP

PATIENT
  Age: 65 Year
  Sex: Male

DRUGS (1)
  1. ZANTAC 150 [Suspect]
     Route: 048
     Dates: start: 20120415, end: 20120416

REACTIONS (2)
  - BLOOD GLUCOSE INCREASED [None]
  - FAECES DISCOLOURED [None]
